FAERS Safety Report 6619776-8 (Version None)
Quarter: 2010Q1

REPORT INFORMATION
  Report Type: 
  Country: None (occurrence: None)
  Receive Date: 20100309
  Receipt Date: 20100303
  Transmission Date: 20100710
  Serious: Yes (Death)
  Sender: FDA-Public Use
  Company Number: FR-JNJFOC-20100301091

PATIENT
  Sex: Male

DRUGS (19)
  1. RISPERDAL [Suspect]
     Indication: DEMENTIA ALZHEIMER'S TYPE
     Route: 048
     Dates: start: 20091101, end: 20091228
  2. MEMANTINE HCL [Suspect]
     Indication: DEMENTIA ALZHEIMER'S TYPE
     Route: 048
     Dates: start: 20091204, end: 20091215
  3. MEMANTINE HCL [Suspect]
     Route: 048
     Dates: start: 20091204, end: 20091215
  4. EQUANIL [Concomitant]
     Indication: DEPRESSION
     Route: 065
     Dates: start: 20091130, end: 20091228
  5. MIRTAZAPINE [Concomitant]
     Indication: DEPRESSION
     Route: 065
     Dates: start: 20091119, end: 20091215
  6. HYDREA [Concomitant]
     Route: 065
  7. CARDENSIEL [Concomitant]
     Route: 065
  8. IKOREL [Concomitant]
     Route: 065
  9. ESIDRIX [Concomitant]
     Route: 065
  10. KENZEN [Concomitant]
     Route: 065
  11. DISCOTRINE [Concomitant]
     Route: 065
  12. MINISINTROM [Concomitant]
     Route: 065
  13. PLAVIX [Concomitant]
     Route: 065
  14. COLCHICINE [Concomitant]
     Route: 065
  15. SEROPLEX [Concomitant]
     Route: 065
  16. SOLUPRED [Concomitant]
     Route: 065
  17. NEXIUM [Concomitant]
     Route: 065
  18. SPECIAFOLDINE [Concomitant]
     Route: 065
  19. CONTRAMAL [Concomitant]
     Route: 065

REACTIONS (10)
  - ACUTE PULMONARY OEDEMA [None]
  - BUNDLE BRANCH BLOCK RIGHT [None]
  - CARDIOMYOPATHY [None]
  - DEHYDRATION [None]
  - ELECTROCARDIOGRAM QT PROLONGED [None]
  - OFF LABEL USE [None]
  - RENAL FAILURE [None]
  - SINUS ARRHYTHMIA [None]
  - SUPRAVENTRICULAR EXTRASYSTOLES [None]
  - VENTRICULAR EXTRASYSTOLES [None]
